FAERS Safety Report 15577621 (Version 4)
Quarter: 2019Q1

REPORT INFORMATION
  Report Type: Other
  Country: ES (occurrence: ES)
  Receive Date: 20181102
  Receipt Date: 20190107
  Transmission Date: 20190417
  Serious: Yes (Hospitalization, Other)
  Sender: FDA-Public Use
  Company Number: ES-APOTEX-2018AP023772

PATIENT
  Age: 23 Year
  Sex: Male

DRUGS (13)
  1. ARA-C [Suspect]
     Active Substance: CYTARABINE
     Indication: ACUTE LYMPHOCYTIC LEUKAEMIA
     Dosage: UNK, CYCLICAL (CONSOLIDATION TREATMENT, REGIMEN 1, AT HIGH DOSE)
     Route: 051
     Dates: start: 20130325, end: 20130725
  2. METHOTREXATE SODIUM. [Suspect]
     Active Substance: METHOTREXATE SODIUM
     Dosage: CYCLICAL
     Route: 065
     Dates: start: 20180323, end: 20180725
  3. IMATINIB. [Suspect]
     Active Substance: IMATINIB MESYLATE
     Indication: ACUTE LYMPHOCYTIC LEUKAEMIA
     Dosage: 600 MG, QD (INDUCTION TREATMENT REGIMEN 1)
     Route: 065
     Dates: start: 20130212
  4. METHOTREXATE SODIUM. [Suspect]
     Active Substance: METHOTREXATE SODIUM
     Indication: ACUTE LYMPHOCYTIC LEUKAEMIA
     Dosage: UNK, CYCLICAL (CONSOLIDATION TREATMENT, REGIMEN 1, AT HIGH DOSE)
     Route: 065
     Dates: start: 20130325, end: 20130725
  5. VINCRISTINE SULFATE. [Suspect]
     Active Substance: VINCRISTINE SULFATE
     Indication: ACUTE LYMPHOCYTIC LEUKAEMIA
     Dosage: INDUCTION TREATMENT (INDUCTION TREATMENT)
     Route: 065
     Dates: start: 20130212
  6. IMATINIB. [Suspect]
     Active Substance: IMATINIB MESYLATE
     Indication: PRODUCT USED FOR UNKNOWN INDICATION
     Dosage: 600 MG, QD (CONSOLIDATION TREATMENT, REGIMEN 2)
     Route: 065
     Dates: start: 20130325, end: 20130725
  7. IMATINIB. [Suspect]
     Active Substance: IMATINIB MESYLATE
     Dosage: 600 MG, QD (MAINTENANCE TREATMENT, REGIMEN 3)
     Route: 065
     Dates: start: 20131022
  8. METHOTREXATE SODIUM. [Suspect]
     Active Substance: METHOTREXATE SODIUM
     Dosage: UNK UNK, CYCLICAL (MAINTENANCE TREATMENT, REGIMEN 2)
     Route: 065
     Dates: start: 20131023
  9. GENOXAL [Suspect]
     Active Substance: CYCLOPHOSPHAMIDE
     Indication: ACUTE LYMPHOCYTIC LEUKAEMIA
     Dosage: UNK UNK, CYCLICAL (REGIMEN 1, CONDITIONING REGIMEN)
     Route: 065
     Dates: start: 20130823
  10. PREDNISONE. [Suspect]
     Active Substance: PREDNISONE
     Indication: ACUTE LYMPHOCYTIC LEUKAEMIA
     Dosage: UNK, CYCLICAL (INDUCTION TREATMENT, REGIMEN 1)
     Route: 065
     Dates: start: 20130212
  11. MERCAPTOPURINE. [Suspect]
     Active Substance: MERCAPTOPURINE
     Indication: ACUTE LYMPHOCYTIC LEUKAEMIA
     Dosage: UNK, CYCLICAL (MAINTENANCE TREATMENT, REGIMEN 1)
     Route: 065
     Dates: start: 20131022
  12. METHOTREXATE SODIUM. [Suspect]
     Active Substance: METHOTREXATE SODIUM
     Dosage: UNK, CYCLICAL (MAINTENANCE TREATMENT, REGIMEN 2)
     Route: 065
     Dates: start: 20131022
  13. DAUNORUBICIN HYDROCHLORIDE. [Suspect]
     Active Substance: DAUNORUBICIN HYDROCHLORIDE
     Indication: ACUTE LYMPHOCYTIC LEUKAEMIA
     Dosage: UNK, UNKNOWN (INDUCTION TREATMENT)
     Route: 065
     Dates: start: 20130212

REACTIONS (3)
  - Pyrexia [Unknown]
  - Acute lymphocytic leukaemia recurrent [Unknown]
  - Musculoskeletal chest pain [Unknown]

NARRATIVE: CASE EVENT DATE: 20140415
